FAERS Safety Report 16924832 (Version 1)
Quarter: 2019Q4

REPORT INFORMATION
  Report Type: Spontaneous
  Country: US (occurrence: US)
  Receive Date: 20190823
  Receipt Date: 20190823
  Transmission Date: 20200122
  Serious: No
  Sender: FDA-Public Use
  Company Number: None

PATIENT
  Sex: Female

DRUGS (1)
  1. ZENPEP [Suspect]
     Active Substance: PANCRELIPASE AMYLASE\PANCRELIPASE LIPASE\PANCRELIPASE PROTEASE
     Indication: CHRONIC HEPATITIS C
     Dosage: ?          OTHER DOSE:40,000U;?
     Route: 048

REACTIONS (3)
  - Dizziness [None]
  - Vomiting [None]
  - Constipation [None]
